FAERS Safety Report 6272909-8 (Version None)
Quarter: 2009Q3

REPORT INFORMATION
  Report Type: 
  Country: None (occurrence: None)
  Receive Date: 20090717
  Receipt Date: 20090704
  Transmission Date: 20100115
  Serious: Yes (Death)
  Sender: FDA-Public Use
  Company Number: DE-PFIZER INC-2009239810

PATIENT
  Age: 25 Year

DRUGS (6)
  1. ARGATRA [Suspect]
     Indication: HEPARIN-INDUCED THROMBOCYTOPENIA
     Dosage: 0.12 MICROG/KG/MIN
     Route: 042
     Dates: start: 20090423
  2. ARGATRA [Suspect]
     Dosage: 0.07 MICROG/KG/MIN
     Route: 042
     Dates: end: 20090430
  3. NOREPINEPHRINE BITARTRATE [Concomitant]
     Dosage: UNK,CONTINUOUSLY
  4. SUPRARENIN [Concomitant]
     Dosage: CONTINUOUSLY
  5. COROTROP [Concomitant]
     Dosage: CONTINUOUSLY
  6. GANCICLOVIR [Concomitant]
     Dosage: UNK, EVERY 4 HR
     Dates: start: 20090425

REACTIONS (2)
  - MULTI-ORGAN FAILURE [None]
  - SEPSIS [None]
